FAERS Safety Report 25126490 (Version 3)
Quarter: 2025Q2

REPORT INFORMATION
  Report Type: Spontaneous
  Country: US (occurrence: US)
  Receive Date: 20250327
  Receipt Date: 20250402
  Transmission Date: 20250716
  Serious: No
  Sender: ELI LILLY AND CO
  Company Number: US-ELI_LILLY_AND_COMPANY-US202503020845

PATIENT
  Age: 51 Year
  Sex: Female

DRUGS (1)
  1. ZEPBOUND [Interacting]
     Active Substance: TIRZEPATIDE
     Indication: Product used for unknown indication
     Route: 058
     Dates: start: 20250324

REACTIONS (10)
  - Hunger [Unknown]
  - Product storage error [Unknown]
  - Insomnia [Unknown]
  - Intermenstrual bleeding [Unknown]
  - Menstrual clots [Unknown]
  - Head injury [Unknown]
  - Gait inability [Unknown]
  - Drug interaction [Unknown]
  - Dizziness [Unknown]
  - Drug hypersensitivity [Unknown]
